FAERS Safety Report 14621196 (Version 2)
Quarter: 2018Q2

REPORT INFORMATION
  Report Type: Spontaneous
  Country: AU (occurrence: AU)
  Receive Date: 20180310
  Receipt Date: 20180422
  Transmission Date: 20180711
  Serious: Yes (Hospitalization)
  Sender: FDA-Public Use
  Company Number: AU-APOTEX-2018AP007948

PATIENT
  Age: 80 Year
  Sex: Female

DRUGS (8)
  1. GABAPENTIN. [Suspect]
     Active Substance: GABAPENTIN
     Indication: CANCER PAIN
     Dosage: 900 MG, EVERY 8 HOURS
     Route: 065
  2. OXYCODONE CONTROLLED RELEASE TABLETS [Suspect]
     Active Substance: OXYCODONE
     Indication: MUSCULOSKELETAL PAIN
     Dosage: 240 MG, Q.12H
     Route: 048
  3. APO-KETAMINE [Suspect]
     Active Substance: KETAMINE
     Indication: MUSCULOSKELETAL PAIN
     Dosage: 500 MG, OVER 24 HOURS
     Route: 058
  4. OXYCODONE CONTROLLED RELEASE TABLETS [Suspect]
     Active Substance: OXYCODONE
     Indication: CANCER PAIN
     Dosage: 60 MG, Q.12H
     Route: 065
  5. ACETAMINOPHEN. [Concomitant]
     Active Substance: ACETAMINOPHEN
     Indication: MUSCULOSKELETAL PAIN
     Dosage: 1 G, Q.6H
     Route: 065
  6. APO-KETAMINE [Suspect]
     Active Substance: KETAMINE
     Indication: CANCER PAIN
     Dosage: 300 MG, OVER 24 HOURS
     Route: 058
  7. ACETAMINOPHEN. [Concomitant]
     Active Substance: ACETAMINOPHEN
     Indication: CANCER PAIN
  8. GABAPENTIN. [Suspect]
     Active Substance: GABAPENTIN
     Indication: MUSCULOSKELETAL PAIN
     Dosage: 1200 MG, EVERY 8 HOURS
     Route: 048

REACTIONS (3)
  - Drug effect decreased [Unknown]
  - Drug tolerance [Unknown]
  - Hyperaesthesia [Unknown]
